FAERS Safety Report 4761778-0 (Version None)
Quarter: 2005Q3

REPORT INFORMATION
  Report Type: 
  Country: None (occurrence: None)
  Receive Date: 20050906
  Receipt Date: 20050519
  Transmission Date: 20060218
  Serious: Yes (Other)
  Sender: FDA-Public Use
  Company Number: US-SOLVAY-00205001685

PATIENT
  Age: 616 Month
  Sex: Male
  Weight: 81 kg

DRUGS (2)
  1. CLARITIN [Concomitant]
     Indication: URTICARIA
     Dosage: DAILY DOSE: 10 MILLIGRAM(S)
     Route: 048
  2. ANDROGEL [Suspect]
     Indication: ILL-DEFINED DISORDER
     Dosage: DAILY DOSE: 7.5 GRAM(S)
     Route: 062
     Dates: start: 20011229, end: 20050412

REACTIONS (4)
  - BLOOD FOLLICLE STIMULATING HORMONE DECREASED [None]
  - BLOOD LUTEINISING HORMONE DECREASED [None]
  - PROSTATE CANCER [None]
  - SPERM COUNT ZERO [None]
